FAERS Safety Report 5556140-7 (Version None)
Quarter: 2007Q4

REPORT INFORMATION
  Report Type: 
  Country: None (occurrence: None)
  Receive Date: 20071213
  Receipt Date: 20071206
  Transmission Date: 20080405
  Serious: Yes (Other)
  Sender: FDA-Public Use
  Company Number: US-MERCK-0712USA02075

PATIENT
  Age: 36 Year
  Sex: Female

DRUGS (2)
  1. SINGULAIR [Suspect]
     Indication: HYPERSENSITIVITY
     Route: 048
     Dates: start: 20060901
  2. SINGULAIR [Suspect]
     Route: 048
     Dates: start: 20071205

REACTIONS (1)
  - MIGRAINE [None]
